FAERS Safety Report 6607294-2 (Version None)
Quarter: 2010Q1

REPORT INFORMATION
  Report Type: 
  Country: None (occurrence: None)
  Receive Date: 20100228
  Receipt Date: 20100215
  Transmission Date: 20100710
  Serious: Yes (Death)
  Sender: FDA-Public Use
  Company Number: US-JNJFOC-20100209934

PATIENT
  Sex: Male
  Weight: 88.91 kg

DRUGS (1)
  1. FENTANYL [Suspect]
     Indication: DRUG USE FOR UNKNOWN INDICATION
     Route: 062

REACTIONS (3)
  - ACCIDENTAL EXPOSURE [None]
  - INTENTIONAL DRUG MISUSE [None]
  - NARCOTIC INTOXICATION [None]
